FAERS Safety Report 9846471 (Version 1)
Quarter: 2014Q1

REPORT INFORMATION
  Report Type: Report from Study
  Country: US (occurrence: US)
  Receive Date: 20140127
  Receipt Date: 20140127
  Transmission Date: 20141002
  Serious: Yes (Death, Hospitalization)
  Sender: FDA-Public Use
  Company Number: US-009507513-1401USA011709

PATIENT
  Age: 58 Year
  Sex: Male
  Weight: 96.4 kg

DRUGS (8)
  1. VORINOSTAT [Suspect]
     Indication: ACUTE MYELOID LEUKAEMIA
     Dosage: 500 MG, TID ON DAYS 1-3
     Route: 048
     Dates: start: 20131030
  2. IDARUBICIN [Suspect]
     Indication: ACUTE MYELOID LEUKAEMIA
     Dosage: 8MG/M2/DAY IV OVER 15 MIN ON DAYS 4-5
     Route: 042
     Dates: start: 20131030
  3. CYTARABINE [Suspect]
     Indication: ACUTE MYELOID LEUKAEMIA
     Dosage: 750MG/M2/DAY CONTINUOUS IV INFUSION ON DAYS 4-6
     Route: 041
     Dates: start: 20131030
  4. AZTREONAM [Concomitant]
     Dosage: UNK
     Dates: start: 20131111
  5. MICAFUNGIN [Concomitant]
     Dosage: UNK
     Dates: start: 20131121
  6. TOBRAMYCIN [Concomitant]
     Dosage: UNK
     Dates: start: 20131120
  7. ACYCLOVIR [Concomitant]
  8. VORICONAZOLE [Concomitant]
     Dosage: UNK
     Dates: start: 20131114

REACTIONS (2)
  - Pulmonary haemorrhage [Fatal]
  - Lung infection [Fatal]
